FAERS Safety Report 5497481-1 (Version None)
Quarter: 2007Q4

REPORT INFORMATION
  Report Type: 
  Country: None (occurrence: None)
  Receive Date: 20071025
  Receipt Date: 20070108
  Transmission Date: 20080405
  Serious: No
  Sender: FDA-Public Use
  Company Number: A0628312A

PATIENT
  Age: 53 Year
  Sex: Male
  Weight: 112.3 kg

DRUGS (10)
  1. ADVAIR DISKUS 100/50 [Suspect]
     Indication: ASTHMA
     Dosage: 1PUFF TWICE PER DAY
     Route: 055
     Dates: start: 20020816, end: 20021101
  2. STEROID [Concomitant]
  3. NEXIUM [Concomitant]
  4. ZYRTEC [Concomitant]
     Dates: start: 20020816
  5. NASONEX [Concomitant]
     Dates: start: 20020816
  6. LIPITOR [Concomitant]
     Dates: start: 20020816
  7. PROVIGIL [Concomitant]
     Dates: start: 20020816
  8. DESYREL [Concomitant]
     Dates: start: 20020816
  9. LASIX [Concomitant]
     Dates: start: 20020816
  10. PREVACID [Concomitant]
     Dates: start: 20020816

REACTIONS (2)
  - CANDIDIASIS [None]
  - COUGH [None]
